FAERS Safety Report 5629654-9 (Version None)
Quarter: 2008Q1

REPORT INFORMATION
  Report Type: 
  Country: None (occurrence: None)
  Receive Date: 20080218
  Receipt Date: 20080212
  Transmission Date: 20080703
  Serious: Yes (Hospitalization)
  Sender: FDA-Public Use
  Company Number: B0486076A

PATIENT
  Age: 58 Year
  Sex: Male

DRUGS (11)
  1. AUGMENTIN '125' [Suspect]
     Dosage: 3G PER DAY
     Route: 042
     Dates: start: 20070706, end: 20070708
  2. TAHOR [Suspect]
     Route: 048
     Dates: start: 20070704, end: 20070707
  3. POLARAMINE [Suspect]
     Route: 042
     Dates: start: 20070706, end: 20070707
  4. AMLOR [Concomitant]
     Dosage: 10MG PER DAY
     Route: 048
     Dates: end: 20070707
  5. ADANCOR [Concomitant]
     Dosage: 20MG PER DAY
     Route: 048
     Dates: end: 20070708
  6. DAFALGAN [Concomitant]
     Route: 048
     Dates: start: 20070704, end: 20070706
  7. KARDEGIC [Concomitant]
     Route: 065
  8. SECTRAL [Concomitant]
     Route: 065
  9. TRIATEC [Concomitant]
     Route: 065
  10. INSULINE [Concomitant]
     Route: 065
  11. ZOCOR [Concomitant]
     Route: 065
     Dates: end: 20070704

REACTIONS (2)
  - BLISTER [None]
  - TOXIC EPIDERMAL NECROLYSIS [None]
